FAERS Safety Report 5202347-8 (Version None)
Quarter: 2007Q1

REPORT INFORMATION
  Report Type: 
  Country: None (occurrence: None)
  Receive Date: 20070109
  Receipt Date: 20061220
  Transmission Date: 20070707
  Serious: Yes (Hospitalization, Other)
  Sender: FDA-Public Use
  Company Number: JP-MERCK-0612USA01221

PATIENT
  Age: 47 Year
  Sex: Female
  Weight: 68 kg

DRUGS (5)
  1. HYZAAR [Suspect]
     Indication: HYPERTENSION
     Route: 048
     Dates: start: 20061128, end: 20061212
  2. ANPLAG [Concomitant]
     Route: 048
     Dates: start: 20060329, end: 20061127
  3. BLOPRESS [Concomitant]
     Route: 048
     Dates: start: 20060601, end: 20061127
  4. MUCOSTA [Concomitant]
     Route: 048
     Dates: start: 20060404, end: 20061127
  5. LOXONIN [Concomitant]
     Route: 048
     Dates: start: 20060404, end: 20061127

REACTIONS (3)
  - COLLAGEN DISORDER [None]
  - CONVULSION [None]
  - LOSS OF CONSCIOUSNESS [None]
